FAERS Safety Report 5170320-4 (Version None)
Quarter: 2006Q4

REPORT INFORMATION
  Report Type: 
  Country: None (occurrence: None)
  Receive Date: 20061204
  Receipt Date: 20061127
  Transmission Date: 20070319
  Serious: Yes (Hospitalization)
  Sender: FDA-Public Use
  Company Number: 083-C5013-06111292

PATIENT
  Age: 68 Year
  Sex: Male
  Weight: 50 kg

DRUGS (1)
  1. REVLIMID [Suspect]
     Indication: MULTIPLE MYELOMA
     Dosage: 25 MG, 1 IN 1 D, ORAL
     Route: 048
     Dates: start: 20060914, end: 20061107

REACTIONS (9)
  - ANAEMIA [None]
  - ASTHENIA [None]
  - BLOOD CREATININE INCREASED [None]
  - BRONCHOPNEUMONIA [None]
  - GENERAL PHYSICAL HEALTH DETERIORATION [None]
  - LEUKOPENIA [None]
  - NEUTROPENIA [None]
  - PYREXIA [None]
  - THROMBOCYTOPENIA [None]
